FAERS Safety Report 6072373-8 (Version None)
Quarter: 2009Q1

REPORT INFORMATION
  Report Type: 
  Country: None (occurrence: None)
  Receive Date: 20090210
  Receipt Date: 20090203
  Transmission Date: 20090719
  Serious: Yes (Other)
  Sender: FDA-Public Use
  Company Number: PHBS2009HK00726

PATIENT
  Age: 47 Year
  Sex: Male

DRUGS (9)
  1. CYCLOSPORINE [Suspect]
     Indication: CORD BLOOD TRANSPLANT THERAPY
  2. METHOTREXATE [Suspect]
     Indication: PROPHYLAXIS AGAINST GRAFT VERSUS HOST DISEASE
  3. BUSULFAN [Suspect]
     Indication: PROPHYLAXIS AGAINST GRAFT VERSUS HOST DISEASE
  4. CYCLOPHOSPHAMIDE [Suspect]
  5. GANCICLOVIR [Concomitant]
  6. CASPOFUNGIN [Concomitant]
  7. PENTAMIDINE [Concomitant]
  8. LAMIVUDINE [Concomitant]
     Indication: HEPATITIS B
  9. ISONIAZID [Concomitant]
     Indication: TUBERCULOSIS

REACTIONS (2)
  - ACUTE GRAFT VERSUS HOST DISEASE [None]
  - CYSTITIS HAEMORRHAGIC [None]
